FAERS Safety Report 22143372 (Version 1)
Quarter: 2023Q1

REPORT INFORMATION
  Report Type: Spontaneous
  Country: FR (occurrence: FR)
  Receive Date: 20230327
  Receipt Date: 20230327
  Transmission Date: 20230417
  Serious: Yes (Hospitalization, Other)
  Sender: FDA-Public Use
  Company Number: None

PATIENT
  Age: 74 Year
  Sex: Female

DRUGS (5)
  1. DUPIXENT [Suspect]
     Active Substance: DUPILUMAB
     Indication: Nasal polyps
     Dosage: 300 MG, QOW
     Route: 042
     Dates: start: 20221026, end: 20221128
  2. LEVOTHYROXINE [Concomitant]
     Active Substance: LEVOTHYROXINE
     Indication: Hypothyroidism
     Dosage: UNK
     Route: 048
  3. FLUTICASONE PROPIONATE\FORMOTEROL FUMARATE [Concomitant]
     Active Substance: FLUTICASONE PROPIONATE\FORMOTEROL FUMARATE
     Indication: Respiratory failure
     Route: 055
  4. ESOMEPRAZOLE SODIUM [Concomitant]
     Active Substance: ESOMEPRAZOLE SODIUM
     Indication: Product used for unknown indication
     Dosage: 20 MG, QD
     Route: 048
  5. SPIRIVA RESPIMAT [Concomitant]
     Active Substance: TIOTROPIUM BROMIDE
     Indication: Respiratory failure
     Route: 055

REACTIONS (2)
  - Ischaemic stroke [Not Recovered/Not Resolved]
  - Incorrect route of product administration [Unknown]

NARRATIVE: CASE EVENT DATE: 20221026
